FAERS Safety Report 17771661 (Version 1)
Quarter: 2020Q2

REPORT INFORMATION
  Report Type: Spontaneous
  Country: US (occurrence: US)
  Receive Date: 20200512
  Receipt Date: 20200512
  Transmission Date: 20200714
  Serious: No
  Sender: FDA-Public Use
  Company Number: US-MAYNE PHARMA-2019MYN000294

PATIENT

DRUGS (2)
  1. LIOTHYRONINE [Suspect]
     Active Substance: LIOTHYRONINE
     Indication: PSYCHIATRIC SYMPTOM
  2. LIOTHYRONINE [Suspect]
     Active Substance: LIOTHYRONINE
     Indication: THYROID HORMONE REPLACEMENT THERAPY
     Dosage: 75 MCG, QD
     Route: 048

REACTIONS (3)
  - Product use in unapproved indication [Unknown]
  - Product substitution issue [Unknown]
  - Drug ineffective [Unknown]
